FAERS Safety Report 24788856 (Version 1)
Quarter: 2024Q4

REPORT INFORMATION
  Report Type: Spontaneous
  Country: CH (occurrence: CH)
  Receive Date: 20241230
  Receipt Date: 20241230
  Transmission Date: 20250115
  Serious: Yes (Other)
  Sender: TEVA
  Company Number: None

PATIENT
  Age: 61 Year
  Sex: Male
  Weight: 80 kg

DRUGS (13)
  1. DEXAMETHASONE [Suspect]
     Active Substance: DEXAMETHASONE
     Indication: Product used for unknown indication
     Dosage: TIME INTERVAL: TOTAL: 30 MINUTES BEFORE CHEMOTHERAPY
     Route: 040
     Dates: start: 20241023, end: 20241023
  2. BRINTELLIX [Concomitant]
     Active Substance: VORTIOXETINE HYDROBROMIDE
     Indication: Product used for unknown indication
     Route: 065
  3. PACLITAXEL [Suspect]
     Active Substance: PACLITAXEL
     Indication: Lung squamous cell carcinoma stage III
     Dosage: OVER 24 H
     Route: 040
     Dates: start: 20240918
  4. CHLORPROTHIXENE [Concomitant]
     Active Substance: CHLORPROTHIXENE
     Indication: Product used for unknown indication
     Route: 065
  5. SPIRIVA RESPIMAT [Concomitant]
     Active Substance: TIOTROPIUM BROMIDE
     Indication: Product used for unknown indication
     Route: 065
  6. CLEMASTINE FUMARATE [Concomitant]
     Active Substance: CLEMASTINE FUMARATE
     Indication: Product used for unknown indication
     Dosage: TIME INTERVAL: TOTAL: ALREADY BEFORE CARBOPLATIN
     Route: 040
     Dates: start: 20241023, end: 20241023
  7. CLEMASTINE FUMARATE [Concomitant]
     Active Substance: CLEMASTINE FUMARATE
     Indication: Product used for unknown indication
     Dosage: TIME INTERVAL: CYCLICAL: 30 MINUTES BEFORE PACLITAXEL
     Route: 040
     Dates: start: 20240918, end: 20241016
  8. PANTOPRAZOLE SODIUM [Concomitant]
     Active Substance: PANTOPRAZOLE SODIUM
     Indication: Product used for unknown indication
     Route: 065
  9. LAMOTRIGINE [Concomitant]
     Active Substance: LAMOTRIGINE
     Indication: Product used for unknown indication
     Route: 065
  10. PALONOSETRON TEVA [Concomitant]
     Indication: Product used for unknown indication
     Dosage: TIME INTERVAL: CYCLICAL: 30 MINUTES BEFORE CHEMOTHERAPY
     Route: 040
     Dates: start: 20240918
  11. DEXAMETHASONE [Suspect]
     Active Substance: DEXAMETHASONE
     Indication: Product used for unknown indication
     Dosage: TIME INTERVAL: TOTAL: 22.10. 2024: 4MG THE DAY BEFORE CHEMOTHERAPY,
     Route: 065
     Dates: start: 20241022, end: 20241022
  12. DEXAMETHASONE [Suspect]
     Active Substance: DEXAMETHASONE
     Indication: Product used for unknown indication
     Dosage: TIME INTERVAL: TOTAL: ON 15.10.2024: 4MG THE DAY BEFORE CHEMOTHERAPY, ON 16.10.24: 12MG 30 MINUTE...
     Route: 040
     Dates: start: 20241015, end: 20241016
  13. CARBOPLATIN [Suspect]
     Active Substance: CARBOPLATIN
     Indication: Lung squamous cell carcinoma stage III
     Route: 040
     Dates: start: 20240918

REACTIONS (4)
  - Cough [Recovered/Resolved]
  - Cough [Recovered/Resolved]
  - Hypersensitivity [Recovered/Resolved]
  - Cough [Recovered/Resolved]

NARRATIVE: CASE EVENT DATE: 20241015
